FAERS Safety Report 10054052 (Version 1)
Quarter: 2014Q2

REPORT INFORMATION
  Report Type: Spontaneous
  Country: US (occurrence: US)
  Receive Date: 20140402
  Receipt Date: 20140402
  Transmission Date: 20141212
  Serious: Yes (Other)
  Sender: FDA-Public Use
  Company Number: CHPA2014US004676

PATIENT
  Age: 62 Year
  Sex: Male

DRUGS (2)
  1. EXCEDRIN EXTRA STRENGTH [Suspect]
     Indication: SINUS HEADACHE
     Dosage: 2 DF, BID
     Route: 048
     Dates: start: 1968
  2. EXCEDRIN EXTRA STRENGTH [Suspect]
     Indication: OFF LABEL USE

REACTIONS (3)
  - Hypertension [Unknown]
  - Paranasal sinus hypersecretion [Unknown]
  - Therapeutic response changed [Unknown]
